FAERS Safety Report 7086432-4 (Version None)
Quarter: 2010Q4

REPORT INFORMATION
  Report Type: 
  Country: None (occurrence: None)
  Receive Date: 20101105
  Receipt Date: 20101022
  Transmission Date: 20110411
  Serious: Yes (Life-Threatening, Other)
  Sender: FDA-Public Use
  Company Number: JP-GENENTECH-306874

PATIENT
  Age: 39 Year
  Sex: Female

DRUGS (7)
  1. OMALIZUMAB [Suspect]
     Indication: ASTHMA
     Dosage: 300 MG, Q2W
     Route: 058
     Dates: start: 20100803, end: 20100831
  2. PARIET [Suspect]
     Indication: ASTHMA
     Dosage: 10 MG, BID
     Route: 048
     Dates: start: 20100717, end: 20100910
  3. PARIET [Suspect]
     Dosage: 20 MG, QD
     Dates: start: 20100723
  4. SYMBICORT [Suspect]
     Indication: ASTHMA
     Dosage: 2 DF, BID
     Route: 024
     Dates: start: 20100128, end: 20100925
  5. SYMBICORT [Suspect]
     Dosage: 4 DF, BID
     Dates: start: 20100330
  6. KIPRES [Suspect]
     Indication: ASTHMA
     Dosage: 10 MG, QD
     Route: 048
     Dates: start: 20091221, end: 20100910
  7. THEOPHYLLINE [Suspect]
     Indication: ASTHMA
     Dosage: 100 MG, BID
     Route: 048
     Dates: start: 20100511, end: 20100910

REACTIONS (7)
  - ALANINE AMINOTRANSFERASE INCREASED [None]
  - ASPARTATE AMINOTRANSFERASE INCREASED [None]
  - BLOOD ALBUMIN INCREASED [None]
  - BLOOD BILIRUBIN INCREASED [None]
  - GAMMA-GLUTAMYLTRANSFERASE INCREASED [None]
  - HEPATIC ENZYME INCREASED [None]
  - MALAISE [None]
